FAERS Safety Report 18043601 (Version 1)
Quarter: 2020Q3

REPORT INFORMATION
  Report Type: Spontaneous
  Country: US (occurrence: US)
  Receive Date: 20200720
  Receipt Date: 20200720
  Transmission Date: 20201103
  Serious: Yes (Hospitalization, Other)
  Sender: FDA-Public Use
  Company Number: US-009507513-2007USA005520

PATIENT
  Age: 81 Year
  Sex: Female

DRUGS (2)
  1. WARFARIN [Concomitant]
     Active Substance: WARFARIN
     Dosage: UNK
  2. KEYTRUDA [Suspect]
     Active Substance: PEMBROLIZUMAB
     Dosage: UNK
     Dates: start: 20200130

REACTIONS (29)
  - Disorientation [Unknown]
  - Oxygen consumption decreased [Unknown]
  - Malignant neoplasm progression [Unknown]
  - Ascites [Unknown]
  - Ventricular enlargement [Unknown]
  - Orthopnoea [Unknown]
  - Atelectasis [Unknown]
  - Renal failure [Unknown]
  - Pulmonary oedema [Unknown]
  - Superinfection [Unknown]
  - Pulmonary hypertension [Unknown]
  - Cardiomegaly [Unknown]
  - Hypoxia [Unknown]
  - Hepatic cirrhosis [Unknown]
  - Hypophagia [Unknown]
  - Chromaturia [Unknown]
  - Troponin increased [Unknown]
  - Lymphadenopathy [Unknown]
  - Inflammation [Unknown]
  - Hypotension [Unknown]
  - Fatigue [Unknown]
  - Asthenia [Unknown]
  - Delirium [Unknown]
  - Pleural effusion [Unknown]
  - Dilatation atrial [Unknown]
  - Intervertebral disc disorder [Unknown]
  - Acute respiratory failure [Unknown]
  - Cor pulmonale [Unknown]
  - Cardiac failure congestive [Unknown]

NARRATIVE: CASE EVENT DATE: 202002
